FAERS Safety Report 6527778-5 (Version None)
Quarter: 2009Q4

REPORT INFORMATION
  Report Type: 
  Country: None (occurrence: None)
  Receive Date: 20091230
  Receipt Date: 20091217
  Transmission Date: 20100525
  Serious: Yes (Death, Hospitalization)
  Sender: FDA-Public Use
  Company Number: 1000009725

PATIENT
  Age: 71 Year
  Sex: Male

DRUGS (2)
  1. MILNACIPRAN (MILNACIPRAN HYDROCHLORIDE) (TABLETS) [Suspect]
     Indication: DEPRESSION
     Dosage: 100 MG, ORAL
     Route: 048
     Dates: start: 20090525, end: 20090925
  2. MILNACIPRAN (MILNACIPRAN HYDROCHLORIDE) (TABLETS) [Suspect]
     Indication: DEPRESSION
     Dosage: 100 MG, ORAL
     Route: 048
     Dates: start: 20091002, end: 20091008

REACTIONS (3)
  - CARDIAC FAILURE CONGESTIVE [None]
  - HEPATOCELLULAR INJURY [None]
  - PROTHROMBIN TIME PROLONGED [None]
